FAERS Safety Report 25251354 (Version 1)
Quarter: 2025Q2

REPORT INFORMATION
  Report Type: Spontaneous
  Country: FR (occurrence: FR)
  Receive Date: 20250429
  Receipt Date: 20250429
  Transmission Date: 20250716
  Serious: Yes (Hospitalization)
  Sender: CIPLA
  Company Number: FR-AFSSAPS-BX2025000578

PATIENT

DRUGS (2)
  1. ESOMEPRAZOLE [Suspect]
     Active Substance: ESOMEPRAZOLE
     Indication: Duodenal ulcer
     Route: 042
     Dates: start: 20250326, end: 20250328
  2. ALLOPURINOL [Concomitant]
     Active Substance: ALLOPURINOL
     Indication: Product used for unknown indication
     Route: 065

REACTIONS (1)
  - Superficial vein thrombosis [Recovering/Resolving]

NARRATIVE: CASE EVENT DATE: 20250328
